FAERS Safety Report 10757496 (Version 2)
Quarter: 2015Q1

REPORT INFORMATION
  Report Type: Spontaneous
  Country: US (occurrence: None)
  Receive Date: 20150130
  Receipt Date: 20150204
  Transmission Date: 20150721
  Serious: Yes (Other)
  Sender: FDA-Public Use
  Company Number: ADR-2015-00202

PATIENT
  Age: 55 Year
  Sex: Female

DRUGS (3)
  1. DILAUDID [Suspect]
     Active Substance: HYDROMORPHONE HYDROCHLORIDE
     Dosage: }1 YR AGO-ONGOING, 0.7494 MG/DAY?
  2. MARCAINE [Suspect]
     Active Substance: BUPIVACAINE HYDROCHLORIDE
     Indication: LOCAL ANAESTHESIA
     Dosage: 1 YEAR AGO-ONGOING, 0.7494 MG/DAY
  3. BACLOFEN INTRATEHCAL [Suspect]
     Active Substance: BACLOFEN
     Indication: BACK PAIN
     Dosage: }1 YR AGO-ONGOING, 0.7494 MG/DAY

REACTIONS (10)
  - Hypoacusis [None]
  - Diarrhoea [None]
  - Device computer issue [None]
  - Chills [None]
  - Parosmia [None]
  - Pain [None]
  - Malaise [None]
  - Feeding disorder [None]
  - Withdrawal syndrome [None]
  - Vomiting [None]

NARRATIVE: CASE EVENT DATE: 20141225
